FAERS Safety Report 10357348 (Version 7)
Quarter: 2014Q4

REPORT INFORMATION
  Report Type: Spontaneous
  Country: IT (occurrence: IT)
  Receive Date: 20140801
  Receipt Date: 20141128
  Transmission Date: 20150528
  Serious: Yes (Hospitalization)
  Sender: FDA-Public Use
  Company Number: IT-PFIZER INC-2014214322

PATIENT
  Age: 24 Year
  Sex: Female

DRUGS (4)
  1. SONIREM [Suspect]
     Active Substance: ZOLPIDEM TARTRATE
     Dosage: 50 GTT, TOTAL (STRENGTH: 10MG/ML)
     Route: 048
     Dates: start: 20140706, end: 20140706
  2. ALPRAZOLAM. [Suspect]
     Active Substance: ALPRAZOLAM
     Dosage: 2 MG, TOTAL
     Route: 048
     Dates: start: 20140706, end: 20140706
  3. SONIREM [Suspect]
     Active Substance: ZOLPIDEM TARTRATE
     Indication: SLEEP DISORDER
     Dosage: UNK
     Route: 048
  4. ALPRAZOLAM. [Suspect]
     Active Substance: ALPRAZOLAM
     Indication: SLEEP DISORDER
     Dosage: UNK
     Route: 048

REACTIONS (2)
  - Sopor [Recovered/Resolved]
  - Drug abuse [Recovered/Resolved]

NARRATIVE: CASE EVENT DATE: 20140707
